FAERS Safety Report 14032718 (Version 2)
Quarter: 2017Q4

REPORT INFORMATION
  Report Type: Spontaneous
  Country: US (occurrence: US)
  Receive Date: 20171002
  Receipt Date: 20171109
  Transmission Date: 20180321
  Serious: No
  Sender: FDA-Public Use
  Company Number: US-PFIZER INC-2017421659

PATIENT
  Age: 82 Year
  Sex: Female
  Weight: 61 kg

DRUGS (6)
  1. DOXYCYCLINE. [Concomitant]
     Active Substance: DOXYCYCLINE
     Indication: NASOPHARYNGITIS
     Dosage: UNK
     Dates: start: 201708, end: 201708
  2. XALATAN [Suspect]
     Active Substance: LATANOPROST
     Indication: GLAUCOMA
     Dosage: ONE DROP IN BOTH EYES ONCE A NIGHT
     Route: 047
  3. XALATAN [Suspect]
     Active Substance: LATANOPROST
     Dosage: 10 MG, 1X/DAY (ONLY AT BEDTIME)
  4. DOXYCYCLINE. [Concomitant]
     Active Substance: DOXYCYCLINE
     Dosage: 100 MG, UNK
     Dates: start: 20170829, end: 20171020
  5. BENZONATATE. [Concomitant]
     Active Substance: BENZONATATE
     Dosage: 200 MG, UNK
     Dates: start: 20170829
  6. XALATAN [Suspect]
     Active Substance: LATANOPROST
     Dosage: 10 MG, 1X/DAY (ONLY AT BEDTIME)
     Dates: start: 2010

REACTIONS (4)
  - Influenza [Unknown]
  - Upper respiratory tract infection [Unknown]
  - Cough [Not Recovered/Not Resolved]
  - Nasopharyngitis [Unknown]

NARRATIVE: CASE EVENT DATE: 201708
